FAERS Safety Report 22193686 (Version 13)
Quarter: 2024Q1

REPORT INFORMATION
  Report Type: Report from Study
  Country: TR (occurrence: TR)
  Receive Date: 20230410
  Receipt Date: 20240227
  Transmission Date: 20240410
  Serious: Yes (Death, Hospitalization, Other)
  Sender: FDA-Public Use
  Company Number: TR-JAZZ PHARMACEUTICALS-2023-TR-007388

PATIENT
  Age: 57 Year
  Sex: Male
  Weight: 70 kg

DRUGS (73)
  1. LURBINECTEDIN [Suspect]
     Active Substance: LURBINECTEDIN
     Indication: Small cell lung cancer extensive stage
     Dosage: 5.9 MILLIGRAM, EVERY 3 WEEKS
     Route: 042
     Dates: start: 20230223, end: 20230314
  2. LURBINECTEDIN [Suspect]
     Active Substance: LURBINECTEDIN
     Dosage: 4.6 MILLIGRAM
     Route: 042
     Dates: start: 20230418
  3. ATEZOLIZUMAB [Suspect]
     Active Substance: ATEZOLIZUMAB
     Indication: Small cell lung cancer extensive stage
     Dosage: 1200 MILLIGRAM, EVERY 3 WEEKS
     Route: 042
     Dates: start: 20221117, end: 20230314
  4. ATEZOLIZUMAB [Suspect]
     Active Substance: ATEZOLIZUMAB
     Dosage: 1200 MILLIGRAM, EVERY 3 WEEKS
     Route: 042
     Dates: start: 20230418
  5. CARBOPLATIN [Suspect]
     Active Substance: CARBOPLATIN
     Indication: Small cell lung cancer extensive stage
     Dosage: 666.4 MILLIGRAM
     Route: 042
     Dates: start: 20221117
  6. CARBOPLATIN [Suspect]
     Active Substance: CARBOPLATIN
     Dosage: 682.9 MILLIGRAM
     Route: 042
     Dates: start: 20230201
  7. ETOPOSIDE [Suspect]
     Active Substance: ETOPOSIDE
     Indication: Small cell lung cancer extensive stage
     Dosage: 183 MILLIGRAM (186 MILLIGRAM OTHER)
     Route: 042
     Dates: start: 20221117, end: 20230203
  8. NORVASC [Concomitant]
     Active Substance: AMLODIPINE BESYLATE
     Indication: Hypertension
     Dosage: UNK
     Dates: start: 20221116
  9. CALCIMAX D3 [CALCIUM CITRATE;COLECALCIFEROL] [Concomitant]
     Dosage: UNK
     Dates: start: 20221214
  10. METHYLPREDNISOLONE [Concomitant]
     Active Substance: METHYLPREDNISOLONE
     Dosage: 32 MILLIGRAM, 2 IN 1 D
     Route: 048
     Dates: start: 20221228
  11. LEVEMIR [Concomitant]
     Active Substance: INSULIN DETEMIR
     Indication: Hyperglycaemia
     Dosage: UNK
     Dates: start: 20230116, end: 20230221
  12. NOVORAPID [Concomitant]
     Active Substance: INSULIN ASPART
     Indication: Hyperglycaemia
     Dosage: UNK
     Dates: start: 20230116, end: 20230221
  13. HUMAN RED BLOOD CELL [Concomitant]
     Active Substance: HUMAN RED BLOOD CELL
     Indication: Anaemia
     Dosage: UNK
     Dates: start: 20230221, end: 20230221
  14. HUMAN RED BLOOD CELL [Concomitant]
     Active Substance: HUMAN RED BLOOD CELL
     Dosage: UNK
     Dates: start: 20230331, end: 20230331
  15. HUMAN RED BLOOD CELL [Concomitant]
     Active Substance: HUMAN RED BLOOD CELL
     Dosage: UNK
     Dates: start: 20230428, end: 20230428
  16. HUMAN RED BLOOD CELL [Concomitant]
     Active Substance: HUMAN RED BLOOD CELL
     Dosage: UNK
     Dates: start: 20230430, end: 20230430
  17. HUMAN RED BLOOD CELL [Concomitant]
     Active Substance: HUMAN RED BLOOD CELL
     Dosage: UNK
     Dates: start: 20230503, end: 20230503
  18. HUMAN RED BLOOD CELL [Concomitant]
     Active Substance: HUMAN RED BLOOD CELL
     Dosage: UNK
     Dates: start: 20230505, end: 20230505
  19. HUMAN RED BLOOD CELL [Concomitant]
     Active Substance: HUMAN RED BLOOD CELL
     Dosage: UNK
     Dates: start: 20230509, end: 20230510
  20. HUMAN RED BLOOD CELL [Concomitant]
     Active Substance: HUMAN RED BLOOD CELL
     Dosage: UNK
     Dates: start: 20230513, end: 20230513
  21. HUMAN RED BLOOD CELL [Concomitant]
     Active Substance: HUMAN RED BLOOD CELL
     Dosage: UNK
     Dates: start: 20230517, end: 20230517
  22. DEXAMETHASONE [Concomitant]
     Active Substance: DEXAMETHASONE
     Dosage: 8 MILLIGRAM, 1 IN 1 AS REQUIRED
     Route: 042
     Dates: start: 20230223, end: 20230223
  23. DEXAMETHASONE [Concomitant]
     Active Substance: DEXAMETHASONE
     Dosage: 8 MILLIGRAM, 1 IN 1 AS REQUIRED
     Route: 042
     Dates: start: 20230314, end: 20230314
  24. DEXAMETHASONE [Concomitant]
     Active Substance: DEXAMETHASONE
     Dosage: 8 MILLIGRAM, 1 IN 1 D
     Route: 042
     Dates: start: 20230418, end: 20230418
  25. DEXAMETHASONE [Concomitant]
     Active Substance: DEXAMETHASONE
     Dosage: 40 MILLIGRAM, 1 IN 1 D
     Route: 042
     Dates: start: 20230503, end: 20230503
  26. DEXAMETHASONE [Concomitant]
     Active Substance: DEXAMETHASONE
     Dosage: 8 MILLIGRAM, 1 IN 1 D
     Route: 042
     Dates: start: 20230509, end: 20230509
  27. ONDANSETRON HYDROCHLORIDE [Concomitant]
     Active Substance: ONDANSETRON HYDROCHLORIDE
     Indication: Premedication
     Dosage: UNK
     Dates: start: 20230223, end: 20230223
  28. ONDANSETRON HYDROCHLORIDE [Concomitant]
     Active Substance: ONDANSETRON HYDROCHLORIDE
     Dosage: UNK
     Dates: start: 20230314, end: 20230314
  29. ONDANSETRON HYDROCHLORIDE [Concomitant]
     Active Substance: ONDANSETRON HYDROCHLORIDE
     Dosage: UNK
     Dates: start: 20230418, end: 20230418
  30. PHENIRAMINE [Concomitant]
     Active Substance: PHENIRAMINE
     Indication: Premedication
     Dosage: UNK
     Dates: start: 20230223, end: 20230223
  31. PHENIRAMINE [Concomitant]
     Active Substance: PHENIRAMINE
     Dosage: UNK
     Dates: start: 20230314, end: 20230314
  32. PHENIRAMINE [Concomitant]
     Active Substance: PHENIRAMINE
     Dosage: UNK
     Dates: start: 20230418, end: 20230418
  33. FRAVEN [Concomitant]
     Dosage: 48 INTERNATIONAL UNIT, 1 IN 1 D
     Route: 058
     Dates: start: 20230225, end: 20230301
  34. FRAVEN [Concomitant]
     Dosage: 48 INTERNATIONAL UNIT, 1 IN 1 D
     Route: 058
     Dates: start: 20230316, end: 20230320
  35. FRAVEN [Concomitant]
     Dosage: 48 GTT,1 IN 1 AS REQUIRED
     Route: 058
     Dates: start: 20230324, end: 20230403
  36. FRAVEN [Concomitant]
     Dosage: 48 GTT,1 IN 1 D
     Route: 058
     Dates: start: 20230420, end: 20230425
  37. FRAVEN [Concomitant]
     Dosage: 48 GTT,1 IN 1 D
     Route: 058
     Dates: start: 20230205, end: 20230209
  38. GRANEXA [Concomitant]
     Dosage: UNK
     Dates: start: 20221121
  39. PANTOPRAZOLE [Concomitant]
     Active Substance: PANTOPRAZOLE
     Dosage: UNK
     Dates: start: 20221221, end: 20230220
  40. SODIUM CHLORIDE [Concomitant]
     Active Substance: SODIUM CHLORIDE
     Dosage: UNK
     Dates: start: 20230323, end: 20230326
  41. SODIUM CHLORIDE [Concomitant]
     Active Substance: SODIUM CHLORIDE
     Dosage: UNK
     Dates: start: 20230329, end: 20230402
  42. SODIUM CHLORIDE [Concomitant]
     Active Substance: SODIUM CHLORIDE
     Dosage: UNK
     Dates: start: 20230426, end: 20230426
  43. SODIUM CHLORIDE [Concomitant]
     Active Substance: SODIUM CHLORIDE
     Dosage: UNK
     Dates: start: 20230428, end: 20230501
  44. SODIUM CHLORIDE [Concomitant]
     Active Substance: SODIUM CHLORIDE
     Dosage: UNK
     Dates: start: 20230505, end: 20230509
  45. SODIUM CHLORIDE [Concomitant]
     Active Substance: SODIUM CHLORIDE
     Dosage: UNK
     Dates: start: 20230511, end: 20230517
  46. DEXTROSE [Concomitant]
     Active Substance: DEXTROSE\DEXTROSE MONOHYDRATE
     Dosage: UNK
     Dates: start: 20230514, end: 20230516
  47. DEXTROSE [Concomitant]
     Active Substance: DEXTROSE\DEXTROSE MONOHYDRATE
     Dosage: UNK
     Dates: start: 20230508, end: 20230508
  48. DEXTROSE [Concomitant]
     Active Substance: DEXTROSE\DEXTROSE MONOHYDRATE
     Dosage: UNK
     Dates: start: 20230512, end: 20230512
  49. DEXTROSE [Concomitant]
     Active Substance: DEXTROSE\DEXTROSE MONOHYDRATE
     Dosage: UNK
     Dates: start: 20230515, end: 20230516
  50. POTASSIUM CHLORIDE [Concomitant]
     Active Substance: POTASSIUM CHLORIDE
     Indication: Prophylaxis
     Dosage: UNK
     Dates: start: 20230326, end: 20230326
  51. POTASSIUM CHLORIDE [Concomitant]
     Active Substance: POTASSIUM CHLORIDE
     Dosage: UNK
     Dates: start: 20230429, end: 20230429
  52. POTASSIUM CHLORIDE [Concomitant]
     Active Substance: POTASSIUM CHLORIDE
     Dosage: UNK
     Dates: start: 20230503, end: 20230503
  53. POTASSIUM CHLORIDE [Concomitant]
     Active Substance: POTASSIUM CHLORIDE
     Dosage: UNK
     Dates: start: 20230506, end: 20230507
  54. POTASSIUM CHLORIDE [Concomitant]
     Active Substance: POTASSIUM CHLORIDE
     Dosage: UNK
     Dates: start: 20230515, end: 20230515
  55. PANTOPRAZOLE SODIUM [Concomitant]
     Active Substance: PANTOPRAZOLE SODIUM
     Dosage: UNK
     Dates: start: 20230322, end: 20230403
  56. PANTOPRAZOLE SODIUM [Concomitant]
     Active Substance: PANTOPRAZOLE SODIUM
     Dosage: UNK
     Dates: start: 20230426, end: 20230511
  57. OMNIPOL [IOHEXOL] [Concomitant]
     Dosage: UNK
     Dates: start: 20230322, end: 20230322
  58. OMNIPOL [IOHEXOL] [Concomitant]
     Dosage: UNK
     Dates: start: 20230516, end: 20230516
  59. KARDOZIN [Concomitant]
     Dosage: UNK
     Dates: start: 20230331, end: 20230331
  60. FARDOBEN [Concomitant]
     Dosage: UNK
     Dates: start: 20230328, end: 20230328
  61. PARACEROL [Concomitant]
     Dosage: UNK
     Dates: start: 20230328, end: 20230328
  62. MEGACE [Concomitant]
     Active Substance: MEGESTROL ACETATE
     Indication: Decreased appetite
     Dosage: UNK
     Dates: start: 20230322
  63. AUGMENTIN [Concomitant]
     Active Substance: AMOXICILLIN\CLAVULANATE POTASSIUM
     Dosage: UNK
     Dates: start: 20230403, end: 20230410
  64. CIPRO [Concomitant]
     Active Substance: CIPROFLOXACIN HYDROCHLORIDE
     Dosage: UNK
     Dates: start: 20230403, end: 20230410
  65. INFENIL [Concomitant]
     Dosage: UNK
     Dates: start: 20230426, end: 20230426
  66. INFENIL [Concomitant]
     Dosage: UNK
     Dates: start: 20230503, end: 20230503
  67. INFENIL [Concomitant]
     Dosage: UNK
     Dates: start: 20230515, end: 20230515
  68. POTASSIUM BICARBONATE;POTASSIUM CITRATE MONOHYDRATE [Concomitant]
     Dosage: UNK
     Dates: start: 20230326, end: 20230326
  69. ENOXAPARIN SODIUM [Concomitant]
     Active Substance: ENOXAPARIN SODIUM
     Dosage: UNK
     Dates: start: 20230323
  70. ROCURONIUM BROMIDE [Concomitant]
     Active Substance: ROCURONIUM BROMIDE
     Dosage: UNK
  71. NACOSEL [Concomitant]
     Dosage: UNK
  72. ALVERINE CITRATE [Concomitant]
     Active Substance: ALVERINE CITRATE
     Dosage: UNK
  73. SIMETHICONE (DIMETHICONE) [Concomitant]
     Active Substance: DIMETHICONE
     Dosage: UNK

REACTIONS (9)
  - Febrile neutropenia [Fatal]
  - Platelet count decreased [Not Recovered/Not Resolved]
  - Neutrophil count decreased [Recovered/Resolved]
  - White blood cell count decreased [Not Recovered/Not Resolved]
  - Lymphocyte count decreased [Not Recovered/Not Resolved]
  - Blood bilirubin increased [Not Recovered/Not Resolved]
  - Pulmonary embolism [Not Recovered/Not Resolved]
  - Alkalosis [Recovered/Resolved]
  - Acidosis [Not Recovered/Not Resolved]

NARRATIVE: CASE EVENT DATE: 20230306
